FAERS Safety Report 4714178-3 (Version None)
Quarter: 2005Q3

REPORT INFORMATION
  Report Type: 
  Country: None (occurrence: None)
  Receive Date: 20050701
  Receipt Date: 20040820
  Transmission Date: 20060218
  Serious: Yes (Hospitalization, Other)
  Sender: FDA-Public Use
  Company Number: 2004057999

PATIENT
  Age: 29 Year
  Sex: Female

DRUGS (3)
  1. ZOLOFT [Suspect]
     Indication: DEPRESSION
     Dosage: 50 MG (50 MG, 1 IN1 D), ORAL
     Route: 048
     Dates: start: 20040101, end: 20040701
  2. ZOLOFT [Suspect]
     Indication: MERYCISM
     Dosage: 50 MG (50 MG, 1 IN1 D), ORAL
     Route: 048
     Dates: start: 20040101, end: 20040701
  3. ZOLOFT [Suspect]
     Indication: THINKING ABNORMAL
     Dosage: 50 MG (50 MG, 1 IN1 D), ORAL
     Route: 048
     Dates: start: 20040101, end: 20040701

REACTIONS (4)
  - COLITIS [None]
  - CROHN'S DISEASE [None]
  - DEHYDRATION [None]
  - DIARRHOEA [None]
